APPROVED DRUG PRODUCT: CLOPRA
Active Ingredient: METOCLOPRAMIDE HYDROCHLORIDE
Strength: EQ 5MG BASE
Dosage Form/Route: TABLET;ORAL
Application: A072384 | Product #001
Applicant: QUANTUM PHARMICS LTD
Approved: Jun 2, 1988 | RLD: No | RS: No | Type: DISCN